FAERS Safety Report 4537529-1 (Version None)
Quarter: 2004Q4

REPORT INFORMATION
  Report Type: 
  Country: None (occurrence: None)
  Receive Date: 20041221
  Receipt Date: 20041001
  Transmission Date: 20050328
  Serious: No
  Sender: FDA-Public Use
  Company Number: A-US2004-07603

PATIENT
  Age: 28 Year
  Sex: Female

DRUGS (3)
  1. TRACLEER [Suspect]
     Indication: PULMONARY HYPERTENSION
     Dosage: 62.5MG, BID, ORAL
     Route: 048
     Dates: start: 20040902
  2. REMODULIN [Concomitant]
  3. ZITHROMAX [Concomitant]

REACTIONS (3)
  - DRUG INTERACTION [None]
  - PRURITUS [None]
  - RASH MACULO-PAPULAR [None]
